FAERS Safety Report 10584129 (Version 1)
Quarter: 2014Q4

REPORT INFORMATION
  Report Type: Spontaneous
  Country: US (occurrence: None)
  Receive Date: 20141113
  Receipt Date: 20141113
  Transmission Date: 20150529
  Serious: Yes (Death, Hospitalization)
  Sender: FDA-Public Use
  Company Number: None

PATIENT
  Age: 50 Year
  Sex: Male
  Weight: 66 kg

DRUGS (2)
  1. IDARUBICIN [Suspect]
     Active Substance: IDARUBICIN
     Dates: end: 20140831
  2. CYTARABINE. [Suspect]
     Active Substance: CYTARABINE
     Dates: end: 20140906

REACTIONS (9)
  - Musculoskeletal pain [None]
  - Unresponsive to stimuli [None]
  - Agitation [None]
  - Blood pressure immeasurable [None]
  - Restlessness [None]
  - Breakthrough pain [None]
  - Respiratory arrest [None]
  - Dyspnoea [None]
  - Pulse absent [None]

NARRATIVE: CASE EVENT DATE: 20140919
